FAERS Safety Report 19507750 (Version 1)
Quarter: 2021Q3

REPORT INFORMATION
  Report Type: Spontaneous
  Country: US (occurrence: US)
  Receive Date: 20210708
  Receipt Date: 20210708
  Transmission Date: 20211014
  Serious: Yes (Hospitalization)
  Sender: FDA-Public Use
  Company Number: US-MYLANLABS-2021M1040334

PATIENT
  Age: 39 Year
  Sex: Male

DRUGS (8)
  1. DORZOLAMIDE TIMOLOL [Suspect]
     Active Substance: DORZOLAMIDE
     Indication: NECROTISING HERPETIC RETINOPATHY
     Dosage: UNK UNK, BID
     Route: 047
  2. VALACICLOVIR [Suspect]
     Active Substance: VALACYCLOVIR HYDROCHLORIDE
     Dosage: 2 GRAM, TID, THREE TIMES A DAY FOR 30 DAYS
     Route: 048
  3. ACICLOVIR [Suspect]
     Active Substance: ACYCLOVIR
     Indication: NECROTISING HERPETIC RETINOPATHY
     Dosage: 15 MILLIGRAM/KILOGRAM, Q8H, EVERY 8 HOURS
     Route: 042
  4. VALACICLOVIR [Suspect]
     Active Substance: VALACYCLOVIR HYDROCHLORIDE
     Dosage: 2 GRAM, Q4D, FOUR TIMES A DAY FOR 7 DAYS
     Route: 048
  5. FOSCARNET [Suspect]
     Active Substance: FOSCARNET
     Indication: NECROTISING HERPETIC RETINOPATHY
     Dosage: 2.4 MILLIGRAM, 2.4MG IN 0.1ML
  6. ATROPINE. [Suspect]
     Active Substance: ATROPINE
     Indication: NECROTISING HERPETIC RETINOPATHY
     Dosage: EYE DROPS
     Route: 047
  7. VALACICLOVIR [Suspect]
     Active Substance: VALACYCLOVIR HYDROCHLORIDE
     Indication: NECROTISING HERPETIC RETINOPATHY
     Dosage: 2 GRAM, Q4D, 4 TIMES DAILY
     Route: 048
  8. SOLU?MEDROL [Suspect]
     Active Substance: METHYLPREDNISOLONE SODIUM SUCCINATE
     Indication: NECROTISING HERPETIC RETINOPATHY
     Dosage: 250 MILLIGRAM, Q6H, EVERY 6 HOURS
     Route: 042

REACTIONS (1)
  - Drug ineffective [Unknown]
